FAERS Safety Report 4494475-X (Version None)
Quarter: 2004Q4

REPORT INFORMATION
  Report Type: 
  Country: None (occurrence: None)
  Receive Date: 20041102
  Receipt Date: 20041015
  Transmission Date: 20050328
  Serious: Yes (Hospitalization)
  Sender: FDA-Public Use
  Company Number: DSA_25228_2004

PATIENT
  Age: 56 Year
  Sex: Male

DRUGS (2)
  1. ENALAPRIL MALEATE [Suspect]
     Indication: HYPERTENSION
     Dosage: 5 MG QD PO
     Route: 048
     Dates: end: 20020501
  2. ZYLORIC ^FAES^ [Concomitant]

REACTIONS (2)
  - ACUTE ABDOMEN [None]
  - GASTROINTESTINAL OEDEMA [None]
